FAERS Safety Report 8966114 (Version 1)
Quarter: 2012Q4

REPORT INFORMATION
  Report Type: Spontaneous
  Country: US (occurrence: None)
  Receive Date: 20121204
  Receipt Date: 20121204
  Transmission Date: 20130627
  Serious: Yes (Other)
  Sender: FDA-Public Use
  Company Number: TPA2012A09262

PATIENT
  Sex: Male

DRUGS (1)
  1. ACTOS (PIOGLITAZONE HYDROCHLORIDE) [Suspect]

REACTIONS (2)
  - Apparent death [None]
  - Skin discolouration [None]
